FAERS Safety Report 9277080 (Version 2)
Quarter: 2013Q2

REPORT INFORMATION
  Report Type: Spontaneous
  Country: US (occurrence: US)
  Receive Date: 20130507
  Receipt Date: 20130517
  Transmission Date: 20140414
  Serious: No
  Sender: FDA-Public Use
  Company Number: US-009507513-1305USA001712

PATIENT
  Sex: Female

DRUGS (8)
  1. VICTRELIS [Suspect]
     Indication: HEPATITIS
     Dosage: 800 MG, TID
     Route: 048
  2. RIBASPHERE [Suspect]
     Indication: HEPATITIS
  3. PEGASYS [Suspect]
     Indication: HEPATITIS
  4. LISINOPRIL [Concomitant]
  5. FOLTX [Concomitant]
  6. METFORMIN [Concomitant]
  7. XANAX [Concomitant]
  8. TRAZODONE HYDROCHLORIDE [Concomitant]

REACTIONS (2)
  - Dyspepsia [Unknown]
  - Dysgeusia [Unknown]
